FAERS Safety Report 15534314 (Version 1)
Quarter: 2018Q4

REPORT INFORMATION
  Report Type: Report from Study
  Country: CA (occurrence: CA)
  Receive Date: 20181021
  Receipt Date: 20181021
  Transmission Date: 20190205
  Serious: Yes (Other)
  Sender: FDA-Public Use
  Company Number: CA-BIOGEN-2016BI00177530

PATIENT
  Age: 46 Year
  Sex: Female

DRUGS (1)
  1. TYSABRI [Suspect]
     Active Substance: NATALIZUMAB
     Indication: MULTIPLE SCLEROSIS
     Route: 042
     Dates: start: 20121215

REACTIONS (4)
  - Palpitations [Recovered/Resolved]
  - Cardiac flutter [Unknown]
  - Dyspnoea [Unknown]
  - Headache [Unknown]

NARRATIVE: CASE EVENT DATE: 20151201
